FAERS Safety Report 5339512-5 (Version None)
Quarter: 2007Q2

REPORT INFORMATION
  Report Type: 
  Country: None (occurrence: None)
  Receive Date: 20070518
  Receipt Date: 20070508
  Transmission Date: 20071010
  Serious: Yes (Other)
  Sender: FDA-Public Use
  Company Number: B0471013A

PATIENT
  Age: 36 Year
  Sex: Female

DRUGS (2)
  1. RANITIDINE HYDROCHLORIDE [Suspect]
     Indication: ABDOMINAL PAIN UPPER
     Dosage: 150 MG / TWICE PER DAY
  2. ALGINIC ACID [Concomitant]

REACTIONS (8)
  - ALANINE AMINOTRANSFERASE INCREASED [None]
  - ASPARTATE AMINOTRANSFERASE INCREASED [None]
  - BILIRUBIN CONJUGATED INCREASED [None]
  - BLOOD BILIRUBIN INCREASED [None]
  - DRUG EXPOSURE DURING PREGNANCY [None]
  - GAMMA-GLUTAMYLTRANSFERASE INCREASED [None]
  - HAEMANGIOMA OF LIVER [None]
  - SPLENOMEGALY [None]
